FAERS Safety Report 8456652-2 (Version None)
Quarter: 2012Q2

REPORT INFORMATION
  Report Type: 
  Country: None (occurrence: None)
  Receive Date: 20120621
  Receipt Date: 20120612
  Transmission Date: 20120825
  Serious: Yes (Other)
  Sender: FDA-Public Use
  Company Number: PT-BAYER-2012-024931

PATIENT
  Age: 36 Year

DRUGS (3)
  1. NIFEDIPINE [Suspect]
     Indication: RAYNAUD'S PHENOMENON
     Dosage: 5 MG, QID
  2. NIFEDIPINE [Suspect]
     Indication: RAYNAUD'S PHENOMENON
     Dosage: 30 MG, QD
  3. NIFEDIPINE [Suspect]
     Dosage: 30 MG, BID

REACTIONS (2)
  - RAYNAUD'S PHENOMENON [None]
  - DIGITAL ULCER [None]
